FAERS Safety Report 5739167-1 (Version None)
Quarter: 2008Q2

REPORT INFORMATION
  Report Type: 
  Country: None (occurrence: None)
  Receive Date: 20080515
  Receipt Date: 20080508
  Transmission Date: 20081010
  Serious: Yes (Hospitalization)
  Sender: FDA-Public Use
  Company Number: B0519347A

PATIENT
  Age: 55 Year
  Sex: Female

DRUGS (4)
  1. PAZOPANIB [Suspect]
     Indication: BREAST CANCER
     Dosage: 400MG PER DAY
     Route: 048
     Dates: start: 20080422, end: 20080427
  2. LAPATINIB [Suspect]
     Indication: BREAST CANCER
     Dosage: 1000MG PER DAY
     Route: 048
     Dates: start: 20080422, end: 20080427
  3. LOPEMIN [Concomitant]
     Indication: DIARRHOEA
     Dosage: 1MG PER DAY
     Route: 048
     Dates: start: 20080427, end: 20080428
  4. MS CONTIN [Concomitant]
     Indication: PAIN
     Dosage: 20MG PER DAY
     Route: 048
     Dates: start: 20050618

REACTIONS (1)
  - ILEUS [None]
